FAERS Safety Report 7543540-9 (Version None)
Quarter: 2011Q2

REPORT INFORMATION
  Report Type: 
  Country: None (occurrence: None)
  Receive Date: 20110613
  Receipt Date: 20011221
  Transmission Date: 20111010
  Serious: Yes (Hospitalization)
  Sender: FDA-Public Use
  Company Number: PHBS2001CA09128

PATIENT
  Sex: Female

DRUGS (6)
  1. DIDROCAL [Concomitant]
  2. EXELON [Suspect]
     Dosage: 1.5 MG, BID
     Route: 048
     Dates: start: 20010907
  3. EXELON [Suspect]
     Dosage: 4.5 MG, BID
     Route: 048
     Dates: start: 20010802
  4. ASPIRIN [Concomitant]
  5. EXELON [Suspect]
     Indication: DEMENTIA ALZHEIMER'S TYPE
     Route: 048
     Dates: start: 20010614
  6. LEVOTHYROXINE SODIUM [Concomitant]

REACTIONS (3)
  - CEREBRAL HAEMORRHAGE [None]
  - THROMBOCYTOPENIA [None]
  - CEREBROVASCULAR ACCIDENT [None]
